FAERS Safety Report 13777385 (Version 2)
Quarter: 2017Q3

REPORT INFORMATION
  Report Type: Spontaneous
  Country: FI (occurrence: FI)
  Receive Date: 20170721
  Receipt Date: 20170905
  Transmission Date: 20171127
  Serious: Yes (Hospitalization)
  Sender: FDA-Public Use
  Company Number: FI-MYLANLABS-2017M1042303

PATIENT
  Age: 54 Year
  Sex: Male

DRUGS (5)
  1. DEPRAKINE [Concomitant]
     Active Substance: VALPROIC ACID
     Indication: PRODUCT USED FOR UNKNOWN INDICATION
     Dosage: 500 MG, AM
     Dates: start: 201703
  2. LEPONEX [Suspect]
     Active Substance: CLOZAPINE
     Indication: MANIA
     Dosage: 150 MG, PM
     Dates: start: 20170306
  3. LEPONEX [Suspect]
     Active Substance: CLOZAPINE
     Indication: PSYCHOTIC DISORDER
  4. DEPRAKINE [Concomitant]
     Active Substance: VALPROIC ACID
     Dosage: 500 MG, PM
     Dates: start: 201703
  5. DIAZEPAM. [Concomitant]
     Active Substance: DIAZEPAM
     Indication: PRODUCT USED FOR UNKNOWN INDICATION
     Dosage: 2 MG, PM
     Dates: start: 201703

REACTIONS (9)
  - Eosinophilic colitis [Unknown]
  - Diarrhoea [Recovered/Resolved]
  - Cough [Unknown]
  - Colitis ulcerative [Unknown]
  - Abdominal pain [Recovered/Resolved]
  - Nasal congestion [Unknown]
  - Vomiting [Recovered/Resolved]
  - C-reactive protein increased [Unknown]
  - Off label use [Unknown]

NARRATIVE: CASE EVENT DATE: 201703
